FAERS Safety Report 24263913 (Version 3)
Quarter: 2024Q4

REPORT INFORMATION
  Report Type: Spontaneous
  Country: US (occurrence: US)
  Receive Date: 20240829
  Receipt Date: 20241003
  Transmission Date: 20250115
  Serious: No
  Sender: ASTELLAS
  Company Number: US-PFIZER INC-PV202400105296

PATIENT
  Age: 58 Year
  Sex: Female

DRUGS (4)
  1. PADCEV [Suspect]
     Active Substance: ENFORTUMAB VEDOTIN-EJFV
     Indication: Product used for unknown indication
     Dosage: 50MG EVERY 70 DAYS
     Route: 065
  2. PADCEV [Suspect]
     Active Substance: ENFORTUMAB VEDOTIN-EJFV
     Dosage: 50MG EVERY WEEK
     Route: 065
  3. PADCEV [Suspect]
     Active Substance: ENFORTUMAB VEDOTIN-EJFV
     Dosage: 0.739MG/KG FOR A DOSE OF 70MG EVERY 7 DAYS
     Route: 065
  4. PADCEV [Suspect]
     Active Substance: ENFORTUMAB VEDOTIN-EJFV
     Dosage: 70MG (0.74MG/KG) EVERY 7 DAYS

REACTIONS (1)
  - Off label use [Unknown]
